FAERS Safety Report 9408037 (Version 1)
Quarter: 2013Q3

REPORT INFORMATION
  Report Type: Report from Study
  Country: DE (occurrence: DE)
  Receive Date: 20130718
  Receipt Date: 20130718
  Transmission Date: 20140515
  Serious: Yes (Hospitalization, Other)
  Sender: FDA-Public Use
  Company Number: DE-SHIRE-ALL1-2013-04716

PATIENT
  Age: 9 Year
  Sex: Male
  Weight: 21.3 kg

DRUGS (1)
  1. IDURSULFASE [Suspect]
     Indication: MUCOPOLYSACCHARIDOSIS II
     Dosage: 12 MG, 1X/WEEK
     Route: 041
     Dates: start: 20070412

REACTIONS (3)
  - Respiratory tract infection [Not Recovered/Not Resolved]
  - Ocular icterus [Unknown]
  - Blood bilirubin increased [Unknown]
